FAERS Safety Report 4430426-1 (Version None)
Quarter: 2004Q3

REPORT INFORMATION
  Report Type: 
  Country: None (occurrence: None)
  Receive Date: 20040721
  Receipt Date: 20030826
  Transmission Date: 20050211
  Serious: Yes (Life-Threatening, Hospitalization, Disabling)
  Sender: FDA-Public Use
  Company Number: WAES 0308USA02516

PATIENT
  Age: 80 Year
  Sex: Female

DRUGS (11)
  1. VIOXX [Suspect]
     Indication: LIMB INJURY
     Dosage: SEE IMAGE
     Route: 048
     Dates: start: 20020201, end: 20020101
  2. VIOXX [Suspect]
     Indication: OSTEOARTHRITIS
     Dosage: SEE IMAGE
     Route: 048
     Dates: start: 20020201, end: 20020101
  3. VIOXX [Suspect]
     Indication: LIMB INJURY
     Dosage: SEE IMAGE
     Route: 048
     Dates: start: 20020101
  4. VIOXX [Suspect]
     Indication: OSTEOARTHRITIS
     Dosage: SEE IMAGE
     Route: 048
     Dates: start: 20020101
  5. BEXTRA [Suspect]
     Indication: OSTEOARTHRITIS
     Dosage: PO
     Route: 048
     Dates: start: 20020101, end: 20020101
  6. FOSAMAX [Concomitant]
  7. HYDRODIURIL [Concomitant]
  8. LOTREL [Concomitant]
  9. MIACALCIN [Concomitant]
  10. NEURONTIN [Concomitant]
  11. CALCIUM (+) VITAMIN K [Concomitant]

REACTIONS (1)
  - RENAL FAILURE ACUTE [None]
